FAERS Safety Report 4367282-6 (Version None)
Quarter: 2004Q2

REPORT INFORMATION
  Report Type: 
  Country: None (occurrence: None)
  Receive Date: 20040524
  Receipt Date: 20040514
  Transmission Date: 20050107
  Serious: Yes (Death)
  Sender: FDA-Public Use
  Company Number: USA-2004-0013322

PATIENT
  Age: 56 Year
  Sex: Male

DRUGS (8)
  1. OXYCONTIN [Suspect]
  2. PERCOCET [Suspect]
  3. CARISOPRODOL [Concomitant]
  4. CEFTIN [Concomitant]
  5. METOPROLOL (METOPROLOL) [Concomitant]
  6. ALPRAZOLAM [Suspect]
  7. PAROXETINE HCL [Suspect]
  8. LIDOCAINE [Suspect]

REACTIONS (8)
  - ACCIDENT [None]
  - ACCIDENTAL OVERDOSE [None]
  - CORONARY ARTERY DISEASE [None]
  - DRUG TOXICITY [None]
  - INTENTIONAL MISUSE [None]
  - MEDICATION ERROR [None]
  - MULTIPLE DRUG OVERDOSE [None]
  - MYOCARDIAL INFARCTION [None]
